FAERS Safety Report 9304086 (Version 2)
Quarter: 2013Q4

REPORT INFORMATION
  Report Type: Spontaneous
  Country: US (occurrence: US)
  Receive Date: 20130522
  Receipt Date: 20131108
  Transmission Date: 20140711
  Serious: Yes (Death, Hospitalization)
  Sender: FDA-Public Use
  Company Number: US-B.I. PHARMACEUTICALS,INC./RIDGEFIELD-2013-BI-14406BP

PATIENT
  Age: 73 Year
  Sex: Male
  Weight: 53.98 kg

DRUGS (12)
  1. PRADAXA [Suspect]
     Indication: ANTICOAGULANT THERAPY
     Dosage: 300 MG
     Dates: start: 20120409, end: 20120416
  2. PRADAXA [Suspect]
     Indication: ATRIAL FIBRILLATION
  3. DUONEB [Concomitant]
     Dosage: 6 ML
     Route: 055
  4. AMIODARONE [Concomitant]
     Dosage: 800 MG
     Route: 048
  5. PRINIVIL [Concomitant]
     Dosage: 2.5 MG
     Route: 048
  6. LOPRESSOR [Concomitant]
     Dosage: 5 MG
     Route: 048
  7. NITROGLYCERIN [Concomitant]
     Indication: CHEST PAIN
     Route: 060
  8. PRAVACHOL [Concomitant]
     Dosage: 20 MG
     Route: 048
  9. THIAMINE [Concomitant]
     Dosage: 100 MG
     Route: 048
  10. PULMICORT [Concomitant]
     Route: 055
  11. KEFLEX [Concomitant]
     Dosage: 2000 MG
     Route: 048
  12. DIFLUCAN [Concomitant]
     Dosage: 100 MG
     Route: 048

REACTIONS (5)
  - Cardiovascular disorder [Fatal]
  - Myocardial infarction [Fatal]
  - Gastrointestinal haemorrhage [Fatal]
  - Anaemia [Unknown]
  - Skin ulcer [Unknown]
